FAERS Safety Report 9541465 (Version 1)
Quarter: 2013Q3

REPORT INFORMATION
  Report Type: Spontaneous
  Country: US (occurrence: None)
  Receive Date: 20130919
  Receipt Date: 20130919
  Transmission Date: 20140515
  Serious: Yes (Other)
  Sender: FDA-Public Use
  Company Number: None

PATIENT
  Sex: Male
  Weight: 92.99 kg

DRUGS (2)
  1. LISINOPRIL [Suspect]
     Indication: HYPERTENSION
  2. LISINOPRIL [Suspect]
     Indication: CARDIAC FAILURE CONGESTIVE

REACTIONS (3)
  - Pruritus [None]
  - Rash [None]
  - Diarrhoea [None]
